FAERS Safety Report 6953350-9 (Version None)
Quarter: 2010Q3

REPORT INFORMATION
  Report Type: 
  Country: None (occurrence: None)
  Receive Date: 20100829
  Receipt Date: 20100609
  Transmission Date: 20110219
  Serious: No
  Sender: FDA-Public Use
  Company Number: US-ABBOTT-10P-163-0650434-00

PATIENT
  Sex: Male
  Weight: 73.548 kg

DRUGS (5)
  1. NIASPAN [Suspect]
     Indication: PRODUCT USED FOR UNKNOWN INDICATION
     Dosage: AT BEDTIME
     Dates: start: 20070101, end: 20100101
  2. NIASPAN [Suspect]
     Dosage: WITH SIMCOR DOSE
     Dates: start: 20100601
  3. SIMCOR [Suspect]
     Indication: PRODUCT USED FOR UNKNOWN INDICATION
     Dosage: 1000/20MG IN THE MORNING
     Dates: start: 20100501
  4. AVODART [Concomitant]
     Indication: PRODUCT USED FOR UNKNOWN INDICATION
  5. FENOFIBRATE [Concomitant]
     Indication: PRODUCT USED FOR UNKNOWN INDICATION

REACTIONS (5)
  - DERMATITIS CONTACT [None]
  - DRUG ADMINISTRATION ERROR [None]
  - FEELING HOT [None]
  - FLUSHING [None]
  - PRURITUS [None]
